FAERS Safety Report 23626272 (Version 3)
Quarter: 2025Q1

REPORT INFORMATION
  Report Type: Other
  Country: US (occurrence: US)
  Receive Date: 20240313
  Receipt Date: 20250120
  Transmission Date: 20250409
  Serious: No
  Sender: TRAVERE THERAPEUTICS
  Company Number: US-TRAVERE-2024TVT00237

PATIENT
  Age: 47 Year
  Sex: Male

DRUGS (2)
  1. FILSPARI [Suspect]
     Active Substance: SPARSENTAN
     Indication: IgA nephropathy
     Route: 048
     Dates: start: 20240306
  2. FILSPARI [Suspect]
     Active Substance: SPARSENTAN
     Route: 048
     Dates: end: 202412

REACTIONS (5)
  - Inappropriate schedule of product administration [Unknown]
  - Eye swelling [Unknown]
  - Fatigue [Unknown]
  - Chromaturia [Unknown]
  - Blood potassium increased [Unknown]

NARRATIVE: CASE EVENT DATE: 20240306
